FAERS Safety Report 6621829-5 (Version None)
Quarter: 2010Q1

REPORT INFORMATION
  Report Type: 
  Country: None (occurrence: None)
  Receive Date: 20100223
  Receipt Date: 20091209
  Transmission Date: 20100710
  Serious: No
  Sender: FDA-Public Use
  Company Number: 002890

PATIENT
  Sex: Male

DRUGS (5)
  1. CIMZIA [Suspect]
     Indication: CROHN'S DISEASE
     Dosage: (SUBCUTANEOUS)
     Route: 058
     Dates: start: 20080101
  2. AZATHIOPRINE [Concomitant]
  3. PENTASA [Concomitant]
  4. FLAGYL [Concomitant]
  5. LEVAQUIN [Concomitant]

REACTIONS (1)
  - DRUG INEFFECTIVE [None]
